FAERS Safety Report 25773737 (Version 1)
Quarter: 2025Q3

REPORT INFORMATION
  Report Type: Spontaneous
  Country: CN (occurrence: CN)
  Receive Date: 20250908
  Receipt Date: 20250908
  Transmission Date: 20251021
  Serious: Yes (Hospitalization)
  Sender: PFIZER
  Company Number: CN-PFIZER INC-PV202500106245

PATIENT
  Age: 11 Year
  Sex: Male
  Weight: 30 kg

DRUGS (14)
  1. CYTARABINE [Suspect]
     Active Substance: CYTARABINE
     Indication: Non-Hodgkin^s lymphoma
     Dosage: 2000MG/(M2.D), Q12H, D5
     Route: 041
     Dates: start: 20250615, end: 20250615
  2. CYTARABINE [Suspect]
     Active Substance: CYTARABINE
     Indication: Precursor T-lymphoblastic lymphoma/leukaemia stage IV
  3. METHOTREXATE SODIUM [Suspect]
     Active Substance: METHOTREXATE SODIUM
     Indication: Non-Hodgkin^s lymphoma
     Dosage: 5G/(M2.D), D1
     Route: 041
     Dates: start: 20250611, end: 20250611
  4. METHOTREXATE SODIUM [Suspect]
     Active Substance: METHOTREXATE SODIUM
     Indication: Precursor T-lymphoblastic lymphoma/leukaemia stage IV
  5. CYCLOPHOSPHAMIDE [Suspect]
     Active Substance: CYCLOPHOSPHAMIDE
     Indication: Non-Hodgkin^s lymphoma
     Dosage: 200MG/(M2.D), Q12H, D2-4
     Route: 041
     Dates: start: 20250612, end: 20250614
  6. CYCLOPHOSPHAMIDE [Suspect]
     Active Substance: CYCLOPHOSPHAMIDE
     Indication: Precursor T-lymphoblastic lymphoma/leukaemia stage IV
  7. DEXAMETHASONE [Concomitant]
     Active Substance: DEXAMETHASONE
     Indication: Precursor T-lymphoblastic lymphoma/leukaemia stage IV
     Dosage: 20MG/(M2.D), D1-5
     Dates: start: 20250611, end: 20250615
  8. DEXAMETHASONE [Concomitant]
     Active Substance: DEXAMETHASONE
     Indication: Prophylaxis
     Route: 037
     Dates: start: 20250611, end: 20250611
  9. VINCRISTINE [Concomitant]
     Active Substance: VINCRISTINE
     Indication: Precursor T-lymphoblastic lymphoma/leukaemia stage IV
     Dosage: 1.5MG/(M2.D), D1, 6
     Dates: start: 20250611, end: 20250611
  10. VINCRISTINE [Concomitant]
     Active Substance: VINCRISTINE
     Dosage: 1.5MG/(M2.D), D1, 6
     Dates: start: 20250616, end: 20250616
  11. MESNA [Concomitant]
     Active Substance: MESNA
     Dates: start: 20250611
  12. PEGASPARGASE [Concomitant]
     Active Substance: PEGASPARGASE
     Indication: Precursor T-lymphoblastic lymphoma/leukaemia stage IV
     Dosage: 2500IU/(M2.D), D6
     Dates: start: 20250616, end: 20250616
  13. CYTARABINE [Concomitant]
     Active Substance: CYTARABINE
     Indication: Prophylaxis
     Route: 037
     Dates: start: 20250611, end: 20250611
  14. METHOTREXATE [Concomitant]
     Active Substance: METHOTREXATE
     Indication: Prophylaxis
     Route: 037
     Dates: start: 20250611, end: 20250611

REACTIONS (5)
  - Myelosuppression [Recovering/Resolving]
  - C-reactive protein increased [Recovering/Resolving]
  - Pyrexia [Unknown]
  - Tonsillar hypertrophy [Unknown]
  - Diarrhoea [Unknown]

NARRATIVE: CASE EVENT DATE: 20250621
